FAERS Safety Report 21232725 (Version 2)
Quarter: 2022Q3

REPORT INFORMATION
  Report Type: Spontaneous
  Country: US (occurrence: US)
  Receive Date: 20220819
  Receipt Date: 20220916
  Transmission Date: 20221027
  Serious: No
  Sender: FDA-Public Use
  Company Number: US-TORRENT-00011968

PATIENT
  Age: 40 Year
  Sex: Female
  Weight: 54 kg

DRUGS (1)
  1. DAPSONE [Suspect]
     Active Substance: DAPSONE
     Indication: Acne
     Dosage: UNKNOWN
     Route: 065
     Dates: start: 2022

REACTIONS (5)
  - Dermatitis [Unknown]
  - Product substitution issue [Unknown]
  - Product quality issue [Unknown]
  - Skin irritation [Unknown]
  - Skin laceration [Unknown]

NARRATIVE: CASE EVENT DATE: 20220101
